FAERS Safety Report 5831491-7 (Version None)
Quarter: 2008Q3

REPORT INFORMATION
  Report Type: 
  Country: None (occurrence: None)
  Receive Date: 20080801
  Receipt Date: 20080725
  Transmission Date: 20090109
  Serious: Yes (Other)
  Sender: FDA-Public Use
  Company Number: GB-GENENTECH-265246

PATIENT
  Age: 20 Year
  Sex: Female

DRUGS (5)
  1. AVASTIN [Suspect]
     Indication: GLAUCOMA
     Route: 031
  2. BRIMONIDINE TARTRATE [Suspect]
     Indication: GLAUCOMA
     Route: 047
  3. LATANOPROST [Suspect]
     Indication: GLAUCOMA
     Route: 047
  4. TIMOLOL MALEATE [Suspect]
     Indication: GLAUCOMA
     Route: 047
  5. INSULIN [Concomitant]
     Indication: DIABETES MELLITUS

REACTIONS (2)
  - IRIS ADHESIONS [None]
  - VITREOUS HAEMORRHAGE [None]
